FAERS Safety Report 5966567-7 (Version None)
Quarter: 2008Q4

REPORT INFORMATION
  Report Type: 
  Country: None (occurrence: None)
  Receive Date: 20081119
  Receipt Date: 20080719
  Transmission Date: 20090506
  Serious: No
  Sender: FDA-Public Use
  Company Number: WAES 0807USA04046

PATIENT
  Age: 85 Year
  Sex: Male

DRUGS (1)
  1. JANUVIA [Suspect]
     Dosage: 50 MG/DAILY/PO
     Route: 048
     Dates: start: 20080301

REACTIONS (1)
  - HYPOGLYCAEMIA [None]
